FAERS Safety Report 5271977-X (Version None)
Quarter: 2007Q1

REPORT INFORMATION
  Report Type: 
  Country: None (occurrence: None)
  Receive Date: 20061214
  Receipt Date: 20060308
  Transmission Date: 20070707
  Serious: Yes (Hospitalization, Other)
  Sender: FDA-Public Use
  Company Number: 2006011643

PATIENT
  Age: 71 Year
  Sex: Male
  Weight: 92.9874 kg

DRUGS (6)
  1. BEXTRA [Suspect]
     Indication: SKELETAL INJURY
     Dosage: 10 MG (10 MG, 1 IN 1 D), ORAL
     Route: 048
     Dates: start: 20041112, end: 20041212
  2. METHADONE HCL [Concomitant]
  3. HYDROCODONE (HYDROCODONE) [Concomitant]
  4. DOXEPIN HCL [Concomitant]
  5. DIAZEPAM [Concomitant]
  6. LEXAPRO [Concomitant]

REACTIONS (2)
  - CHEST PAIN [None]
  - PARAESTHESIA [None]
